FAERS Safety Report 6075628-6 (Version None)
Quarter: 2009Q1

REPORT INFORMATION
  Report Type: 
  Country: None (occurrence: None)
  Receive Date: 20090212
  Receipt Date: 20090201
  Transmission Date: 20090719
  Serious: Yes (Hospitalization, Other)
  Sender: FDA-Public Use
  Company Number: US-PFIZER INC-2008088685

PATIENT
  Sex: Female
  Weight: 90.7 kg

DRUGS (16)
  1. ATARAX [Suspect]
  2. BETASERON [Suspect]
     Indication: RELAPSING-REMITTING MULTIPLE SCLEROSIS
     Dosage: 8 MIU
     Route: 058
     Dates: start: 20050613
  3. REQUIP [Concomitant]
  4. BACLOFEN [Concomitant]
  5. NEURONTIN [Concomitant]
  6. ZYRTEC [Concomitant]
  7. ALLEGRA [Concomitant]
  8. AVONEX [Concomitant]
  9. REBIF [Concomitant]
  10. COPAXONE [Concomitant]
  11. SYNTHROID [Concomitant]
  12. PRAVACHOL [Concomitant]
  13. SENOKOT [Concomitant]
  14. ASPIRIN [Concomitant]
     Indication: ARTHRALGIA
  15. CORTICOSTEROIDS [Concomitant]
  16. IBUPROFEN [Concomitant]
     Dosage: UNK

REACTIONS (7)
  - DIABETES MELLITUS [None]
  - DIZZINESS [None]
  - FALL [None]
  - MOBILITY DECREASED [None]
  - PAIN [None]
  - RASH GENERALISED [None]
  - SYNCOPE [None]
